FAERS Safety Report 9397321 (Version 1)
Quarter: 2013Q3

REPORT INFORMATION
  Report Type: Spontaneous
  Country: US (occurrence: US)
  Receive Date: 20130712
  Receipt Date: 20130712
  Transmission Date: 20140515
  Serious: Yes (Other)
  Sender: FDA-Public Use
  Company Number: US-PFIZER INC-2013202518

PATIENT
  Age: 33 Year
  Sex: Male

DRUGS (1)
  1. CHANTIX [Suspect]
     Dosage: 0.5 AND 1 MG
     Dates: start: 20090325, end: 20090424

REACTIONS (1)
  - Convulsion [Unknown]
